FAERS Safety Report 23219749 (Version 1)
Quarter: 2023Q4

REPORT INFORMATION
  Report Type: Spontaneous
  Country: US (occurrence: US)
  Receive Date: 20231122
  Receipt Date: 20231122
  Transmission Date: 20240110
  Serious: No
  Sender: FDA-Public Use
  Company Number: US-AVADEL CNS PHARMACEUTICALS, LLC-2023AVA00098

PATIENT
  Age: 18 Year
  Sex: Male

DRUGS (2)
  1. LUMRYZ [Suspect]
     Active Substance: SODIUM OXYBATE
     Indication: Narcolepsy
     Dosage: WEEK 2: MIX CONTENTS OF 1 PACKET (6 G) WITH WATER IN PROVIDED MIXING CUP AND DRINK, 1X/DAY AT BEDTIM
     Route: 048
     Dates: start: 202308, end: 202308
  2. LUMRYZ [Suspect]
     Active Substance: SODIUM OXYBATE
     Indication: Narcolepsy
     Dosage: WEEK 3 AND THEREAFTER: MIX THE CONTENTS OF 1 PACKET (7.5 G) WITH WATER IN PROVIDED MIXING CUP AND DR
     Route: 048
     Dates: start: 202308

REACTIONS (1)
  - Headache [Not Recovered/Not Resolved]

NARRATIVE: CASE EVENT DATE: 20230801
